FAERS Safety Report 12447929 (Version 4)
Quarter: 2016Q3

REPORT INFORMATION
  Report Type: Spontaneous
  Country: FI (occurrence: FI)
  Receive Date: 20160608
  Receipt Date: 20160909
  Transmission Date: 20161109
  Serious: Yes (Death, Hospitalization)
  Sender: FDA-Public Use
  Company Number: FI-CELGENEUS-FIN-2016055598

PATIENT
  Age: 71 Year

DRUGS (2)
  1. IMNOVID [Suspect]
     Active Substance: POMALIDOMIDE
     Indication: PLASMA CELL MYELOMA
     Route: 048
     Dates: start: 20140820, end: 20150728
  2. DEXAMETHASONE. [Concomitant]
     Active Substance: DEXAMETHASONE
     Indication: PLASMA CELL MYELOMA
     Route: 065
     Dates: start: 20140820

REACTIONS (3)
  - Plasma cell myeloma [Fatal]
  - Pneumonia pneumococcal [Recovered/Resolved]
  - Intraventricular haemorrhage [Fatal]

NARRATIVE: CASE EVENT DATE: 20150730
